FAERS Safety Report 7416333-0 (Version None)
Quarter: 2011Q2

REPORT INFORMATION
  Report Type: 
  Country: None (occurrence: None)
  Receive Date: 20110414
  Receipt Date: 20110406
  Transmission Date: 20111010
  Serious: Yes (Hospitalization)
  Sender: FDA-Public Use
  Company Number: US-B.I. PHARMACEUTICALS,INC./RIDGEFIELD-2011-BP-10326BP

PATIENT
  Sex: Female

DRUGS (4)
  1. CO Q10 [Concomitant]
  2. DILTIAZEM HCL [Concomitant]
     Dosage: 300 MG
  3. CLONIDINE HCL [Suspect]
     Indication: HYPERTENSION
     Dosage: 0.4 MG
     Route: 048
  4. BENAZEPRIL HYDROCHLORIDE [Concomitant]
     Dosage: 40 MG

REACTIONS (3)
  - BLOOD PRESSURE INCREASED [None]
  - GAIT DISTURBANCE [None]
  - NAUSEA [None]
